FAERS Safety Report 7620588-7 (Version None)
Quarter: 2011Q3

REPORT INFORMATION
  Report Type: 
  Country: None (occurrence: None)
  Receive Date: 20110719
  Receipt Date: 20110711
  Transmission Date: 20111222
  Serious: Yes (Hospitalization)
  Sender: FDA-Public Use
  Company Number: GB-ROCHE-788042

PATIENT
  Sex: Male
  Weight: 67 kg

DRUGS (7)
  1. FOLIC ACID [Concomitant]
  2. CALCIUM CARBONATE [Concomitant]
  3. TOCILIZUMAB [Suspect]
     Indication: RHEUMATOID ARTHRITIS
     Route: 042
     Dates: start: 20100922, end: 20110616
  4. PREDNISONE [Concomitant]
  5. MULTI-VITAMIN [Concomitant]
  6. TRAMADOL HYDROCHLORIDE/ACETAMINOPHEN [Concomitant]
  7. VIT D [Concomitant]

REACTIONS (6)
  - LEUKOCYTOSIS [None]
  - INFECTION [None]
  - NAUSEA [None]
  - HEADACHE [None]
  - CHEST PAIN [None]
  - ABDOMINAL PAIN [None]
